FAERS Safety Report 4277727-8 (Version None)
Quarter: 2004Q1

REPORT INFORMATION
  Report Type: 
  Country: None (occurrence: None)
  Receive Date: 20040121
  Receipt Date: 20040115
  Transmission Date: 20041129
  Serious: Yes (Death)
  Sender: FDA-Public Use
  Company Number: IT-SHR-04-019752

PATIENT
  Age: 74 Year
  Sex: Female

DRUGS (1)
  1. ULTRAVIST 370 [Suspect]
     Indication: COMPUTERISED TOMOGRAM
     Dosage: 120 ML 1 DOSE, INTRAVENOUS
     Route: 042
     Dates: start: 20030102, end: 20040102

REACTIONS (6)
  - BRADYCARDIA [None]
  - CARDIAC ARREST [None]
  - CONVULSION [None]
  - CYANOSIS [None]
  - DYSPNOEA [None]
  - SHOCK [None]
